FAERS Safety Report 23194867 (Version 1)
Quarter: 2023Q4

REPORT INFORMATION
  Report Type: Spontaneous
  Country: US (occurrence: US)
  Receive Date: 20231117
  Receipt Date: 20231117
  Transmission Date: 20240110
  Serious: Yes (Hospitalization)
  Sender: FDA-Public Use
  Company Number: US-AVET LIFESCIENCES LTD-2023-AVET-000331

PATIENT
  Age: 3 Year
  Sex: Female
  Weight: 13 kg

DRUGS (2)
  1. PROPOFOL [Suspect]
     Active Substance: PROPOFOL
     Indication: Status epilepticus
     Dosage: 258 ?G?KG-1?HR-1
  2. KETAMINE [Concomitant]
     Active Substance: KETAMINE
     Dosage: 3 MG?KG-1?HR-1

REACTIONS (3)
  - Circulatory collapse [Recovering/Resolving]
  - Propofol infusion syndrome [Recovering/Resolving]
  - Off label use [Unknown]
